FAERS Safety Report 15579307 (Version 1)
Quarter: 2018Q4

REPORT INFORMATION
  Report Type: Spontaneous
  Country: US (occurrence: US)
  Receive Date: 20181102
  Receipt Date: 20181102
  Transmission Date: 20190205
  Serious: Yes (Other)
  Sender: FDA-Public Use
  Company Number: US-SA-2017SA268294

PATIENT
  Age: 44 Year
  Sex: Female
  Weight: 89 kg

DRUGS (14)
  1. DEXAMETHASONE. [Concomitant]
     Active Substance: DEXAMETHASONE
     Dosage: 20 MG,UNK
     Route: 065
  2. EFFEXOR [Concomitant]
     Active Substance: VENLAFAXINE HYDROCHLORIDE
     Dosage: 75 MG,UNK
     Route: 048
  3. APREPITANT. [Concomitant]
     Active Substance: APREPITANT
     Dosage: 125 MG,QD
     Route: 048
  4. IBUPROFEN. [Concomitant]
     Active Substance: IBUPROFEN
  5. ONDANSETRON [Concomitant]
     Active Substance: ONDANSETRON
     Dosage: 24 MG,UNK
     Route: 065
  6. PROCHLORPERAZINE. [Concomitant]
     Active Substance: PROCHLORPERAZINE
     Dosage: 10 MG,UNK
     Route: 065
  7. WELLBUTRIN [Concomitant]
     Active Substance: BUPROPION HYDROCHLORIDE
     Dosage: 300 MG,QD
     Route: 065
  8. PARAPLATIN [Concomitant]
     Active Substance: CARBOPLATIN
  9. SILVADENE [Concomitant]
     Active Substance: SILVER SULFADIAZINE
  10. TAXOTERE [Suspect]
     Active Substance: DOCETAXEL
     Indication: BREAST CANCER
     Dosage: 168 MG, Q3W
     Route: 042
     Dates: start: 20080312, end: 20080312
  11. CEFALEXIN [Concomitant]
     Active Substance: CEPHALEXIN
     Dosage: 500 MG,UNK
     Route: 048
  12. DIPHENHYDRAMINE. [Concomitant]
     Active Substance: DIPHENHYDRAMINE
     Dosage: 50 MG,UNK
     Route: 065
  13. APREPITANT. [Concomitant]
     Active Substance: APREPITANT
     Dosage: 80 MG,QD
     Route: 048
  14. PEGFILGRASTIM [Concomitant]
     Active Substance: PEGFILGRASTIM
     Dosage: UNK UNK,UNK
     Route: 058

REACTIONS (1)
  - Alopecia [Not Recovered/Not Resolved]

NARRATIVE: CASE EVENT DATE: 200803
